FAERS Safety Report 6221238-7 (Version None)
Quarter: 2009Q2

REPORT INFORMATION
  Report Type: 
  Country: None (occurrence: None)
  Receive Date: 20090610
  Receipt Date: 20080602
  Transmission Date: 20091009
  Serious: Yes (Other)
  Sender: FDA-Public Use
  Company Number: US-MERCK-0906USA01001

PATIENT
  Sex: Female
  Weight: 1 kg

DRUGS (3)
  1. CRIXIVAN [Suspect]
     Route: 064
  2. LAMIVUDINE [Concomitant]
     Route: 064
  3. ZIDOVUDINE [Concomitant]
     Route: 064

REACTIONS (2)
  - MATERNAL DRUGS AFFECTING FOETUS [None]
  - SMALL FOR DATES BABY [None]
